FAERS Safety Report 11320240 (Version 2)
Quarter: 2015Q3

REPORT INFORMATION
  Report Type: Spontaneous
  Country: JP (occurrence: JP)
  Receive Date: 20150729
  Receipt Date: 20150817
  Transmission Date: 20151125
  Serious: Yes (Hospitalization)
  Sender: FDA-Public Use
  Company Number: JP-PFIZER INC-2015251130

PATIENT
  Age: 55 Year
  Sex: Male
  Weight: 54.2 kg

DRUGS (3)
  1. BANAN [Suspect]
     Active Substance: CEFPODOXIME PROXETIL
     Indication: NASOPHARYNGITIS
     Dosage: 100 MG, 2X/DAY
     Route: 048
  2. LOXONIN [Suspect]
     Active Substance: LOXOPROFEN SODIUM
     Dosage: 60 MG, AS NEEDED
     Route: 048
  3. ALLOPURINOL. [Suspect]
     Active Substance: ALLOPURINOL
     Indication: HYPERURICAEMIA
     Dosage: UNK
     Route: 048

REACTIONS (5)
  - Pancreatic enlargement [Recovered/Resolved]
  - Generalised erythema [Recovered/Resolved]
  - Diabetes mellitus [Recovered/Resolved]
  - Rash [Recovered/Resolved]
  - Hepatomegaly [Recovered/Resolved]
